FAERS Safety Report 15153621 (Version 1)
Quarter: 2018Q3

REPORT INFORMATION
  Report Type: Spontaneous
  Country: US (occurrence: US)
  Receive Date: 20180717
  Receipt Date: 20180717
  Transmission Date: 20181010
  Serious: No
  Sender: FDA-Public Use
  Company Number: US-GLAXOSMITHKLINE-US2018GSK122503

PATIENT
  Sex: Female

DRUGS (2)
  1. LAMICTAL XR [Concomitant]
     Active Substance: LAMOTRIGINE
  2. LAMOTRIGINE PROLONGED?RELEASE TABLET [Suspect]
     Active Substance: LAMOTRIGINE

REACTIONS (3)
  - Product substitution issue [Unknown]
  - Therapeutic response changed [Unknown]
  - Vomiting [Unknown]
